FAERS Safety Report 10224384 (Version 1)
Quarter: 2014Q2

REPORT INFORMATION
  Report Type: Spontaneous
  Country: US (occurrence: None)
  Receive Date: 20140605
  Receipt Date: 20140605
  Transmission Date: 20141212
  Serious: Yes (Hospitalization)
  Sender: FDA-Public Use
  Company Number: UTC-048043

PATIENT
  Age: 62 Year
  Sex: Female
  Weight: 90.3 kg

DRUGS (1)
  1. REMODULIN (TREPROSTINIL SODIUM) INJECTION, 2.5MG/ML [Suspect]
     Indication: PULMONARY HYPERTENSION
     Dosage: 0.016 UG/KG/MIN, CONTINUING, IV DRIP
     Route: 041
     Dates: start: 20131029

REACTIONS (2)
  - Right ventricular failure [None]
  - Fluid overload [None]
